FAERS Safety Report 7980280-6 (Version None)
Quarter: 2011Q4

REPORT INFORMATION
  Report Type: 
  Country: None (occurrence: None)
  Receive Date: 20111214
  Receipt Date: 20111206
  Transmission Date: 20120403
  Serious: Yes (Hospitalization)
  Sender: FDA-Public Use
  Company Number: DE-AMGEN-DEUSP2011059508

PATIENT
  Age: 75 Year
  Sex: Female
  Weight: 67.5 kg

DRUGS (4)
  1. PROLIA [Suspect]
     Dosage: 60 MG, UNK
     Dates: start: 20110801
  2. IMMUNOSUPPRESSANTS [Concomitant]
  3. PROLIA [Suspect]
     Indication: OSTEOPOROSIS POSTMENOPAUSAL
     Dosage: 60 MG, Q6MO
     Route: 058
     Dates: start: 20110324, end: 20110901
  4. GLUCOCORTICOIDS [Concomitant]

REACTIONS (2)
  - DIARRHOEA [None]
  - OSTEONECROSIS OF JAW [None]
